FAERS Safety Report 4752628-7 (Version None)
Quarter: 2005Q3

REPORT INFORMATION
  Report Type: 
  Country: None (occurrence: None)
  Receive Date: 20050824
  Receipt Date: 20050817
  Transmission Date: 20060218
  Serious: Yes (Other)
  Sender: FDA-Public Use
  Company Number: 2005088028

PATIENT
  Age: 49 Year
  Sex: Male

DRUGS (1)
  1. GEODON [Suspect]
     Indication: ILL-DEFINED DISORDER
     Dosage: 100 MG (2 IN 1 D)
     Dates: start: 20041027, end: 20041208

REACTIONS (1)
  - PARKINSONISM [None]
